FAERS Safety Report 12439329 (Version 1)
Quarter: 2016Q2

REPORT INFORMATION
  Report Type: Spontaneous
  Country: US (occurrence: US)
  Receive Date: 20160606
  Receipt Date: 20160606
  Transmission Date: 20160815
  Serious: No
  Sender: FDA-Public Use
  Company Number: US-BAUSCH-BL-2016-005189

PATIENT
  Age: 67 Year
  Sex: Male

DRUGS (2)
  1. LUZU [Suspect]
     Active Substance: LULICONAZOLE
     Indication: FUNGAL SKIN INFECTION
     Dosage: 1 APPLICATION DAILY TO BOTH FEET BELOW THE ANKLES
     Route: 061
     Dates: start: 201509
  2. JUBLIA [Suspect]
     Active Substance: EFINACONAZOLE
     Indication: ONYCHOMYCOSIS
     Route: 061
     Dates: start: 201509

REACTIONS (3)
  - No adverse event [Unknown]
  - Drug dose omission [Unknown]
  - Treatment noncompliance [Unknown]

NARRATIVE: CASE EVENT DATE: 201602
